FAERS Safety Report 7778425-6 (Version None)
Quarter: 2011Q3

REPORT INFORMATION
  Report Type: 
  Country: None (occurrence: None)
  Receive Date: 20110926
  Receipt Date: 20110916
  Transmission Date: 20111222
  Serious: Yes (Life-Threatening, Hospitalization, Disabling, Other)
  Sender: FDA-Public Use
  Company Number: US-GLAXOSMITHKLINE-A0944625A

PATIENT
  Age: 65 Year
  Sex: Male

DRUGS (2)
  1. WARFARIN SODIUM [Concomitant]
     Dosage: 5MG PER DAY
     Route: 048
  2. ARIXTRA [Suspect]
     Indication: ATRIAL FIBRILLATION
     Dosage: 7.5MG PER DAY
     Route: 058
     Dates: start: 20110907, end: 20110913

REACTIONS (4)
  - OVERDOSE [None]
  - HAEMORRHAGE [None]
  - RENAL FAILURE [None]
  - BLOOD CALCIUM DECREASED [None]
